FAERS Safety Report 7205715-8 (Version None)
Quarter: 2010Q4

REPORT INFORMATION
  Report Type: 
  Country: None (occurrence: None)
  Receive Date: 20101231
  Receipt Date: 20101221
  Transmission Date: 20110411
  Serious: Yes (Other)
  Sender: FDA-Public Use
  Company Number: US-ACTELION-A-NJ2010-43020

PATIENT

DRUGS (1)
  1. BOSENTAN TABLET UNKNOWN US MG [Suspect]
     Dosage: UNK
     Route: 048
     Dates: start: 20100726

REACTIONS (3)
  - FALL [None]
  - PAIN [None]
  - RIB FRACTURE [None]
